FAERS Safety Report 4539267-8 (Version None)
Quarter: 2004Q4

REPORT INFORMATION
  Report Type: 
  Country: None (occurrence: None)
  Receive Date: 20041228
  Receipt Date: 20041220
  Transmission Date: 20050328
  Serious: Yes (Other)
  Sender: FDA-Public Use
  Company Number: PT-JNJFOC-20031002138

PATIENT
  Age: 53 Year
  Sex: Female

DRUGS (12)
  1. REMICADE [Suspect]
     Dosage: 19TH INFUSION
     Route: 042
  2. REMICADE [Suspect]
     Dosage: 6TH INFUSION
     Route: 042
  3. REMICADE [Suspect]
     Indication: RHEUMATOID ARTHRITIS
     Dosage: 1ST INFUSION
     Route: 042
  4. METHOTREXATE [Concomitant]
  5. PREDNISOLONE [Concomitant]
     Dosage: 5MG - 7.5MG
  6. CELECOXIB [Concomitant]
  7. PANTOPRAZOL [Concomitant]
  8. CALCIUM [Concomitant]
  9. VITAMIN D [Concomitant]
  10. PREMARIN PLUS [Concomitant]
  11. PREMARIN PLUS [Concomitant]
  12. IRON [Concomitant]

REACTIONS (9)
  - ACOUSTIC NEUROMA [None]
  - ARTHRITIS [None]
  - CONVULSION [None]
  - DISEASE RECURRENCE [None]
  - DIZZINESS [None]
  - EPILEPSY [None]
  - FACIAL PARESIS [None]
  - POLYARTHRITIS [None]
  - POST PROCEDURAL COMPLICATION [None]
